FAERS Safety Report 9002119 (Version 1)
Quarter: 2013Q1

REPORT INFORMATION
  Report Type: Spontaneous
  Country: US (occurrence: None)
  Receive Date: 20130103
  Receipt Date: 20130103
  Transmission Date: 20140127
  Serious: No
  Sender: FDA-Public Use
  Company Number: None

PATIENT
  Age: 69 Year
  Sex: Female
  Weight: 45.81 kg

DRUGS (2)
  1. ONDANSETRON HCL [Suspect]
     Indication: NAUSEA
     Dosage: EVERY 6 HOURS
     Route: 048
  2. ONDANSETRON HCL [Suspect]
     Indication: CONCUSSION
     Dosage: EVERY 6 HOURS
     Route: 048

REACTIONS (7)
  - Dizziness [None]
  - Dyskinesia [None]
  - Vertigo [None]
  - Drug dispensing error [None]
  - Feeling abnormal [None]
  - Headache [None]
  - Balance disorder [None]
